FAERS Safety Report 21174328 (Version 3)
Quarter: 2022Q4

REPORT INFORMATION
  Report Type: Spontaneous
  Country: US (occurrence: US)
  Receive Date: 20220804
  Receipt Date: 20221017
  Transmission Date: 20230113
  Serious: Yes (Other)
  Sender: FDA-Public Use
  Company Number: US-BRISTOL-MYERS SQUIBB COMPANY-2022-084395

PATIENT
  Age: 72 Year
  Sex: Female

DRUGS (1)
  1. REVLIMID [Suspect]
     Active Substance: LENALIDOMIDE
     Indication: Product used for unknown indication
     Dosage: EVERY DAY FOR 21 DAYS, 7 DAYS OFF FOR A 28 DAY CYCLE, TAKE 1 CAPSULE BY MOUTH DAILY FOR 21 DAYS FOLL
     Route: 048

REACTIONS (3)
  - Jaw disorder [Unknown]
  - COVID-19 [Recovered/Resolved]
  - Mouth swelling [Unknown]
